FAERS Safety Report 25811953 (Version 2)
Quarter: 2025Q3

REPORT INFORMATION
  Report Type: Report from Study
  Country: US (occurrence: US)
  Receive Date: 20250917
  Receipt Date: 20250918
  Transmission Date: 20251021
  Serious: Yes (Other)
  Sender: ROCHE
  Company Number: US-ROCHE-10000386882

PATIENT
  Age: 64 Year
  Sex: Male

DRUGS (2)
  1. COTELLIC [Suspect]
     Active Substance: COBIMETINIB FUMARATE
     Indication: Langerhans^ cell histiocytosis
     Dosage: TAKE 2 TABLET(S) BY MOUTH (40MG) EVERY DAY FOR 21 DAYS FOLLOWED BY 1 WEEK OFF- THEN REPEAT.
     Route: 048
  2. ZELBORAF [Suspect]
     Active Substance: VEMURAFENIB
     Indication: Product used for unknown indication
     Dosage: TAKE 4 TABLET(S) BY MOUTH TWICE A DAY
     Route: 048

REACTIONS (2)
  - Neoplasm malignant [Unknown]
  - Blood pressure abnormal [Unknown]
